FAERS Safety Report 9378498 (Version 3)
Quarter: 2013Q3

REPORT INFORMATION
  Report Type: Spontaneous
  Country: US (occurrence: US)
  Receive Date: 20130702
  Receipt Date: 20130731
  Transmission Date: 20140515
  Serious: Yes (Hospitalization, Other)
  Sender: FDA-Public Use
  Company Number: US-AMGEN-USASP2013045900

PATIENT
  Age: 13 Year
  Sex: Female
  Weight: 62.2 kg

DRUGS (33)
  1. EPOGEN [Suspect]
     Indication: RENAL FAILURE CHRONIC
     Dosage: 10000 UNIT, 3 TIMES/WK
     Route: 042
     Dates: start: 201203, end: 201303
  2. KEPPRA [Concomitant]
     Dosage: 250 MG, QD
     Route: 048
  3. KEPPRA [Concomitant]
     Dosage: 500 MG, 3 TABLET EVERY MORNING AND 1 TABLET EVERY EVENING
  4. KEPPRA [Concomitant]
     Dosage: 1250 MG, DAILY
  5. CELLCEPT                           /01275102/ [Concomitant]
     Dosage: 1000 MG, Q12H
     Route: 048
  6. CELLCEPT                           /01275102/ [Concomitant]
     Dosage: 500 MG, UNK
     Route: 048
  7. ATENOLOL [Concomitant]
     Dosage: 25 MG, QD
     Route: 048
  8. CALCIUM ACETATE [Concomitant]
     Dosage: 667 MG, UNK
  9. CLONIDINE [Concomitant]
     Dosage: 0.3 MG, Q3WK/24 HR WEEKLY
     Route: 061
  10. DOXAZOCIN [Concomitant]
     Dosage: 8 MG, QD
     Route: 048
  11. PEPCID                             /00706001/ [Concomitant]
     Dosage: 10 MG, QD
     Route: 048
  12. PEPCID                             /00706001/ [Concomitant]
     Dosage: 10 MG, QD
     Route: 048
  13. LISINOPRIL [Concomitant]
     Dosage: 20 MG, QD
     Route: 048
  14. NIFEDIPINE [Concomitant]
     Dosage: 50 MG, TWICE DAILY
     Route: 048
  15. NIFEDIPINE [Concomitant]
     Dosage: 90 MG, BID
     Route: 048
  16. DELTASONE                          /00044701/ [Concomitant]
     Dosage: 40 MG, EVERY 24 HRS
     Route: 048
  17. DELTASONE                          /00044701/ [Concomitant]
     Dosage: 20 MG, QD EVERY MORNING
     Route: 048
  18. DELTASONE                          /00044701/ [Concomitant]
     Dosage: 10 MG, QD
     Route: 048
  19. CALCITRIOL [Concomitant]
     Dosage: 0.5 MUG, 24 HOURS
     Route: 048
  20. VENOFER [Concomitant]
     Dosage: 100 MG, WITH DIALYSIS X10 DOSES
     Route: 042
  21. OYSTER SHELL CALCIUM [Concomitant]
     Dosage: 500 MG, TID
     Route: 048
  22. DIOVAN [Concomitant]
     Dosage: 160 MG, QD  EVERY MORNING FOR 31 DAYS
     Route: 048
  23. HYDRALAZINE [Concomitant]
     Dosage: 50 MG, BID
     Route: 048
  24. DIALYSATE [Concomitant]
     Dosage: UNK
     Dates: start: 20120726, end: 20120808
  25. COREG [Concomitant]
     Dosage: 25 MG, BID
     Route: 048
  26. DIALYVITE [Concomitant]
     Dosage: 800 MG, QD
     Route: 048
  27. RENAGEL                            /01459901/ [Concomitant]
     Dosage: 400 MG, QD
     Route: 048
  28. POLYSPORIN                         /00130201/ [Concomitant]
     Dosage: 500-10000 UNIT/G
  29. TRILEPTAL [Concomitant]
     Dosage: 150 MG, 2 TIMES DAILY
     Route: 048
  30. COZAAR [Concomitant]
     Dosage: 25 MG, Q12H
     Route: 048
  31. ZOFRAN                             /00955301/ [Concomitant]
     Dosage: 4 MG, EVERY 8 HOUR AS NEEDED
     Route: 060
  32. DIASTAT                            /00017001/ [Concomitant]
     Dosage: UNK AS NEEDED
     Route: 054
  33. VITAMIN B COMPLEX [Concomitant]
     Dosage: 800 MG, QD
     Route: 048

REACTIONS (25)
  - Renal failure chronic [Not Recovered/Not Resolved]
  - Lupus nephritis [Unknown]
  - Haemoglobin decreased [Unknown]
  - Drug effect decreased [Unknown]
  - Peritonitis [Unknown]
  - Glomerulonephritis chronic [Unknown]
  - Aplasia pure red cell [Unknown]
  - Mineral metabolism disorder [Unknown]
  - Bone disorder [Unknown]
  - Hyperkalaemia [Recovered/Resolved]
  - Hyperparathyroidism secondary [Unknown]
  - Vitamin D deficiency [Unknown]
  - Diarrhoea [Unknown]
  - Cushingoid [Unknown]
  - Drug resistance [Unknown]
  - Rash papular [Unknown]
  - Lethargy [Unknown]
  - No therapeutic response [Unknown]
  - Anaemia [Unknown]
  - Blood pressure increased [Unknown]
  - Convulsion [Unknown]
  - Arthralgia [Unknown]
  - Rash pruritic [Unknown]
  - Nausea [Unknown]
  - Vomiting [Recovered/Resolved]
